FAERS Safety Report 7039416-6 (Version None)
Quarter: 2010Q4

REPORT INFORMATION
  Report Type: 
  Country: None (occurrence: None)
  Receive Date: 20101012
  Receipt Date: 20100928
  Transmission Date: 20110411
  Serious: Yes (Hospitalization)
  Sender: FDA-Public Use
  Company Number: SE-SOLVAY-00310006119

PATIENT
  Age: 59 Year
  Sex: Male

DRUGS (3)
  1. CARDIOVERSION [Concomitant]
     Indication: CARDIOVASCULAR DISORDER
     Dosage: DAILY DOSE:  UNKNOWN
     Route: 065
  2. WARAN [Interacting]
     Indication: ATRIAL FIBRILLATION
     Dosage: DAILY DOSE:  UNKNOWN
     Route: 048
  3. TESTOSTERONE [Suspect]
     Indication: PRODUCT USED FOR UNKNOWN INDICATION
     Dosage: DAILY DOSE:  UNKNOWN
     Route: 062
     Dates: end: 20100705

REACTIONS (5)
  - DRUG INTERACTION [None]
  - FAECES DISCOLOURED [None]
  - HAEMATURIA [None]
  - INTERNATIONAL NORMALISED RATIO INCREASED [None]
  - PROTHROMBIN LEVEL DECREASED [None]
